FAERS Safety Report 26146981 (Version 1)
Quarter: 2025Q4

REPORT INFORMATION
  Report Type: Spontaneous
  Country: IL (occurrence: IL)
  Receive Date: 20251211
  Receipt Date: 20251211
  Transmission Date: 20260117
  Serious: Yes (Life-Threatening, Hospitalization, Other)
  Sender: B. BRAUN MEDICAL INC.
  Company Number: IL-B. Braun Medical Inc.-IL-BBM-202504630

PATIENT
  Age: 69 Year
  Sex: Male

DRUGS (1)
  1. ARGININE\LYSINE [Suspect]
     Active Substance: ARGININE\LYSINE
     Indication: Neuroendocrine tumour metastatic
     Dosage: AA SOLUTION ADMINISTERED AT A DOSE THREE TIMES HIGHER THAN THE RECOMMENDED PROTOCOL, ADMINISTERED AT A RAPID INFUSION RATE.

REACTIONS (4)
  - Hyperkalaemia [Recovered/Resolved]
  - Metabolic acidosis [Recovered/Resolved]
  - Acute kidney injury [Recovered/Resolved]
  - Overdose [Recovered/Resolved]
